FAERS Safety Report 8588644-7 (Version None)
Quarter: 2012Q3

REPORT INFORMATION
  Report Type: 
  Country: None (occurrence: None)
  Receive Date: 20120813
  Receipt Date: 20120806
  Transmission Date: 20120928
  Serious: Yes (Other)
  Sender: FDA-Public Use
  Company Number: PHEH2011US05970

PATIENT
  Sex: Male

DRUGS (4)
  1. GLEEVEC [Suspect]
     Dosage: 400 MG, DAILY
     Route: 048
     Dates: start: 20110713
  2. GLEEVEC [Suspect]
     Indication: CHORDOMA
     Dosage: 400 MG, DAILY
     Route: 048
     Dates: start: 20110614
  3. GLEEVEC [Suspect]
     Dosage: 800 MG, DAILY
     Route: 048
  4. CISPLATIN [Concomitant]
     Dosage: UNK UKN, WEEKLY FOR 16 WEEKS
     Route: 042

REACTIONS (19)
  - NEOPLASM MALIGNANT [None]
  - RASH MORBILLIFORM [None]
  - ADVERSE EVENT [None]
  - NEOPLASM PROGRESSION [None]
  - SENSORY LOSS [None]
  - HAEMOGLOBIN DECREASED [None]
  - HEART RATE INCREASED [None]
  - PAIN [None]
  - TREMOR [None]
  - MUSCLE SPASMS [None]
  - DYSPNOEA [None]
  - FATIGUE [None]
  - ASTHENIA [None]
  - INFLUENZA LIKE ILLNESS [None]
  - DIARRHOEA [None]
  - PRODUCT QUALITY ISSUE [None]
  - RASH [None]
  - DRUG INEFFECTIVE [None]
  - MEASLES [None]
